FAERS Safety Report 8392862-0 (Version None)
Quarter: 2012Q2

REPORT INFORMATION
  Report Type: 
  Country: None (occurrence: None)
  Receive Date: 20120529
  Receipt Date: 20110426
  Transmission Date: 20120825
  Serious: No
  Sender: FDA-Public Use
  Company Number: US-MYLANLABS-2011S1008767

PATIENT
  Sex: Male

DRUGS (7)
  1. AMOXICILLIN [Concomitant]
  2. CYCLOBENAZPRINE [Concomitant]
  3. VICODIN [Concomitant]
  4. DIAZEPAM [Suspect]
     Route: 048
  5. IBUPROFEN [Concomitant]
  6. HYDROCORTISONE [Concomitant]
  7. ZOLPIDEM TARTRATE [Suspect]
     Indication: INSOMNIA
     Route: 048

REACTIONS (1)
  - ALOPECIA [None]
